FAERS Safety Report 7968906-4 (Version None)
Quarter: 2011Q4

REPORT INFORMATION
  Report Type: 
  Country: None (occurrence: None)
  Receive Date: 20111209
  Receipt Date: 20111207
  Transmission Date: 20120403
  Serious: Yes (Life-Threatening, Hospitalization, Other)
  Sender: FDA-Public Use
  Company Number: ES-BAYER-2011-118078

PATIENT
  Age: 5 Year
  Sex: Female

DRUGS (1)
  1. IBUPROFEN [Suspect]

REACTIONS (4)
  - TOXIC EPIDERMAL NECROLYSIS [None]
  - KERATOPATHY [None]
  - IRIS ADHESIONS [None]
  - SKIN HYPERPIGMENTATION [None]
